FAERS Safety Report 5285069-7 (Version None)
Quarter: 2007Q2

REPORT INFORMATION
  Report Type: 
  Country: None (occurrence: None)
  Receive Date: 20070403
  Receipt Date: 20070329
  Transmission Date: 20071010
  Serious: Yes (Death)
  Sender: FDA-Public Use
  Company Number: KR-GILEAD-2007-0011454

PATIENT
  Sex: Male

DRUGS (6)
  1. ADEFOVIR DIPIVOXIL [Suspect]
     Indication: HEPATITIS B
     Route: 048
     Dates: start: 20060309, end: 20060323
  2. LAMIVUDINE [Concomitant]
     Dates: start: 20030117, end: 20060323
  3. SILYMARIN [Concomitant]
     Dates: start: 20011012, end: 20060323
  4. FUROSEMIDE [Concomitant]
     Dates: start: 20060309, end: 20060323
  5. SPIRONOLACTONE [Concomitant]
     Dates: start: 20060309, end: 20060323
  6. URSODIOL [Concomitant]
     Dates: start: 19981104, end: 20060323

REACTIONS (1)
  - VARICES OESOPHAGEAL [None]
